FAERS Safety Report 8054091-X (Version None)
Quarter: 2012Q1

REPORT INFORMATION
  Report Type: 
  Country: None (occurrence: None)
  Receive Date: 20120118
  Receipt Date: 20120111
  Transmission Date: 20120608
  Serious: Yes (Hospitalization)
  Sender: FDA-Public Use
  Company Number: PHHY2012FI002643

PATIENT
  Sex: Female

DRUGS (6)
  1. RIVATRIL [Concomitant]
     Dosage: 0.5 MG, BID
  2. ENALAPRIL MALEATE AND HYDROCHLOROTHIAZIDE [Concomitant]
  3. RISPERIDONE [Suspect]
     Indication: ABNORMAL BEHAVIOUR
     Dosage: 2 MG, UNK
     Route: 048
     Dates: start: 20110928, end: 20111217
  4. NEUROTOL [Concomitant]
     Dosage: 200 MG, BID
  5. ORGAMETRIL [Concomitant]
     Dosage: 5 MG, QD
  6. NIFEDIPINE [Concomitant]
     Dosage: 60 MG, QD

REACTIONS (4)
  - CONSTIPATION [None]
  - ANXIETY [None]
  - FORMICATION [None]
  - BURSITIS INFECTIVE [None]
